FAERS Safety Report 9288024 (Version 1)
Quarter: 2013Q2

REPORT INFORMATION
  Report Type: Spontaneous
  Country: CN (occurrence: CN)
  Receive Date: 20130514
  Receipt Date: 20130514
  Transmission Date: 20140414
  Serious: Yes (Hospitalization, Other)
  Sender: FDA-Public Use
  Company Number: CN-ELI_LILLY_AND_COMPANY-CN201305001949

PATIENT
  Age: 55 Year
  Sex: Male

DRUGS (3)
  1. HUMULIN 30% REGULAR, 70% NPH [Suspect]
     Indication: DIABETES MELLITUS
     Dosage: UNK
     Dates: start: 2005, end: 20130425
  2. HUMULIN 30% REGULAR, 70% NPH [Suspect]
     Dosage: UNK
     Route: 058
     Dates: start: 20130425
  3. HUMULIN 30% REGULAR, 70% NPH [Suspect]
     Dosage: UNK

REACTIONS (2)
  - Diabetic ketoacidotic hyperglycaemic coma [Recovered/Resolved]
  - Drug ineffective [Recovered/Resolved]
